FAERS Safety Report 22595848 (Version 2)
Quarter: 2023Q2

REPORT INFORMATION
  Report Type: Spontaneous
  Country: CO (occurrence: CO)
  Receive Date: 20230613
  Receipt Date: 20230629
  Transmission Date: 20230721
  Serious: No
  Sender: FDA-Public Use
  Company Number: CO-PFIZER INC-PV202300096894

PATIENT

DRUGS (1)
  1. GENOTROPIN [Suspect]
     Active Substance: SOMATROPIN
     Dosage: 1.4 MG
     Route: 058

REACTIONS (5)
  - Device information output issue [Unknown]
  - Device power source issue [Unknown]
  - Expired device used [Unknown]
  - Drug dose omission by device [Unknown]
  - Product colour issue [Unknown]

NARRATIVE: CASE EVENT DATE: 20230528
